FAERS Safety Report 4843010-2 (Version None)
Quarter: 2005Q4

REPORT INFORMATION
  Report Type: 
  Country: None (occurrence: None)
  Receive Date: 20051201
  Receipt Date: 20010614
  Transmission Date: 20060501
  Serious: Yes (Death, Life-Threatening, Hospitalization, Disabling)
  Sender: FDA-Public Use
  Company Number: AR-ROCHE-262324

PATIENT
  Age: 45 Year
  Sex: Male
  Weight: 56.7 kg

DRUGS (7)
  1. INTERFERON ALFA-2A [Suspect]
     Route: 058
     Dates: start: 20010322, end: 20010612
  2. INTERFERON ALFA-2A [Suspect]
     Route: 058
     Dates: end: 20010720
  3. RIBAVIRIN [Suspect]
     Dosage: WITH FOOD.
     Route: 048
     Dates: start: 20010322, end: 20010612
  4. RIBAVIRIN [Suspect]
     Dosage: WITH FOOD.
     Route: 048
     Dates: end: 20010720
  5. ESTAVUDINA [Concomitant]
     Indication: DRUG USE FOR UNKNOWN INDICATION
     Dates: start: 20010121, end: 20010619
  6. EFAVIRENZ [Concomitant]
     Indication: DRUG USE FOR UNKNOWN INDICATION
     Dates: start: 20000620, end: 20010619
  7. DIDANOSINA [Concomitant]
     Indication: DRUG USE FOR UNKNOWN INDICATION
     Dates: start: 20000620, end: 20010619

REACTIONS (12)
  - AREFLEXIA [None]
  - CARDIAC ARREST [None]
  - CONFUSIONAL STATE [None]
  - DISORIENTATION [None]
  - ENTEROCOCCAL BACTERAEMIA [None]
  - HAEMODYNAMIC INSTABILITY [None]
  - HYPOTENSION [None]
  - HYPOTHERMIA [None]
  - METABOLIC ACIDOSIS [None]
  - PARAESTHESIA [None]
  - PNEUMONIA [None]
  - RESPIRATORY DISORDER [None]
